FAERS Safety Report 6427374-4 (Version None)
Quarter: 2009Q4

REPORT INFORMATION
  Report Type: 
  Country: None (occurrence: None)
  Receive Date: 20091030
  Receipt Date: 20091022
  Transmission Date: 20100525
  Serious: Yes (Hospitalization)
  Sender: FDA-Public Use
  Company Number: 2009AL006777

PATIENT
  Age: 78 Year

DRUGS (6)
  1. HYDROCHLOROTHIAZIDE [Suspect]
     Indication: HYPERTENSION
     Dosage: 25 MG;QD
  2. SIMAVASTATIN [Concomitant]
  3. TRAZODONE HCL [Concomitant]
  4. ALBUTEROL [Concomitant]
  5. BRIMONIDINE [Concomitant]
  6. LEVOBUNOLOL HCL [Concomitant]

REACTIONS (11)
  - BLOOD LACTIC ACID INCREASED [None]
  - DIARRHOEA [None]
  - DRUG HYPERSENSITIVITY [None]
  - ELECTROCARDIOGRAM CHANGE [None]
  - HEART RATE DECREASED [None]
  - INFLUENZA LIKE ILLNESS [None]
  - PNEUMONIA [None]
  - SEPTIC SHOCK [None]
  - TACHYCARDIA [None]
  - TROPONIN I INCREASED [None]
  - WHITE BLOOD CELL COUNT DECREASED [None]
